FAERS Safety Report 6635505-6 (Version None)
Quarter: 2010Q1

REPORT INFORMATION
  Report Type: 
  Country: None (occurrence: None)
  Receive Date: 20100315
  Receipt Date: 20100127
  Transmission Date: 20100710
  Serious: No
  Sender: FDA-Public Use
  Company Number: US-ABBOTT-10P-163-0623271-00

PATIENT
  Age: 28 Year
  Sex: Male

DRUGS (1)
  1. DEPAKOTE [Suspect]
     Indication: CONVULSION
     Route: 048

REACTIONS (2)
  - IRRITABILITY [None]
  - PAIN [None]
